FAERS Safety Report 9825831 (Version 1)
Quarter: 2013Q4

REPORT INFORMATION
  Report Type: Spontaneous
  Country: US (occurrence: None)
  Receive Date: 20131028
  Receipt Date: 20131028
  Transmission Date: 20140711
  Serious: Yes (Hospitalization)
  Sender: FDA-Public Use
  Company Number: 2013US001870

PATIENT
  Age: 45 Year
  Sex: Female
  Weight: 114 kg

DRUGS (4)
  1. ICLUSIG [Suspect]
     Indication: CHRONIC MYELOID LEUKAEMIA
     Route: 048
     Dates: start: 20130325
  2. SYNTHROID (LEVOTHYROXINE SODIUM) [Concomitant]
  3. IRON (IRON) [Concomitant]
  4. HYDROCODONE (HYDROCODONE) [Concomitant]

REACTIONS (1)
  - Abdominal pain upper [None]
